FAERS Safety Report 9210947 (Version 1)
Quarter: 2013Q2

REPORT INFORMATION
  Report Type: Spontaneous
  Country: US (occurrence: US)
  Receive Date: 20130404
  Receipt Date: 20130404
  Transmission Date: 20140414
  Serious: Yes (Hospitalization)
  Sender: FDA-Public Use
  Company Number: US-TEVA-395562USA

PATIENT
  Age: 76 Year
  Sex: Female

DRUGS (5)
  1. FENTORA [Suspect]
     Route: 002
     Dates: start: 20130129
  2. OXYCODONE [Concomitant]
     Indication: PAIN
  3. CRESTOR [Concomitant]
     Indication: BLOOD CHOLESTEROL INCREASED
  4. BENICAR HCT [Concomitant]
     Indication: HYPERTENSION
  5. FENTANYL [Concomitant]
     Indication: PAIN

REACTIONS (1)
  - Pain [Unknown]
